FAERS Safety Report 10949795 (Version 4)
Quarter: 2015Q4

REPORT INFORMATION
  Report Type: Report from Study
  Country: US (occurrence: US)
  Receive Date: 20150324
  Receipt Date: 20151212
  Transmission Date: 20160304
  Serious: Yes (Other)
  Sender: FDA-Public Use
  Company Number: US-ASTRAZENECA-2015SE01050

PATIENT
  Age: 18926 Day
  Sex: Female

DRUGS (1)
  1. OLAPARIB [Suspect]
     Active Substance: OLAPARIB
     Indication: OVARIAN CANCER
     Route: 048

REACTIONS (9)
  - Fatigue [Unknown]
  - Chest pain [Recovering/Resolving]
  - Abdominal pain [Unknown]
  - Epistaxis [Unknown]
  - Painful respiration [Recovering/Resolving]
  - Drug dose omission [Unknown]
  - Vomiting [Unknown]
  - Food intolerance [Unknown]
  - Nausea [Unknown]

NARRATIVE: CASE EVENT DATE: 20150103
